FAERS Safety Report 19579336 (Version 1)
Quarter: 2021Q3

REPORT INFORMATION
  Report Type: Spontaneous
  Country: US (occurrence: US)
  Receive Date: 20210719
  Receipt Date: 20210719
  Transmission Date: 20211014
  Serious: No
  Sender: FDA-Public Use
  Company Number: US-NOVOPROD-775608

PATIENT
  Sex: Male

DRUGS (2)
  1. OZEMPIC [Suspect]
     Active Substance: SEMAGLUTIDE
     Indication: PRODUCT USED FOR UNKNOWN INDICATION
     Dosage: START AT ^HALF DOSE^; INCREASED TO 1MG DOSE AFTER A MONTH.
     Route: 058
     Dates: start: 202010, end: 202011
  2. OZEMPIC [Suspect]
     Active Substance: SEMAGLUTIDE
     Dosage: RESTARTED AT LOWER DOSE; INCREASED TO 1 MG DOSE AFTER TWO WEEKS
     Route: 058
     Dates: start: 202012

REACTIONS (2)
  - Inappropriate schedule of product administration [Unknown]
  - Gynaecomastia [Not Recovered/Not Resolved]

NARRATIVE: CASE EVENT DATE: 202010
